FAERS Safety Report 9039389 (Version 1)
Quarter: 2013Q1

REPORT INFORMATION
  Report Type: Report from Study
  Country: US (occurrence: US)
  Receive Date: 20130129
  Receipt Date: 20130129
  Transmission Date: 20140127
  Serious: No
  Sender: FDA-Public Use
  Company Number: US-ABBOTT-12P-163-0930508-00

PATIENT
  Age: 45 Year
  Sex: Female

DRUGS (3)
  1. HUMIRA 40 MG/0.8 ML PEN [Suspect]
     Indication: CROHN^S DISEASE
     Dosage: LOADING DOSE
     Dates: start: 20120425, end: 20120426
  2. HUMIRA 40 MG/0.8 ML PEN [Suspect]
  3. SYNTHYROID [Concomitant]
     Indication: THYROIDECTOMY
     Dosage: ONE PILL DAILY

REACTIONS (2)
  - Feeling abnormal [Recovered/Resolved]
  - Injection site pain [Recovered/Resolved]
